FAERS Safety Report 12681294 (Version 11)
Quarter: 2020Q3

REPORT INFORMATION
  Report Type: Spontaneous
  Country: US (occurrence: US)
  Receive Date: 20160824
  Receipt Date: 20200902
  Transmission Date: 20201102
  Serious: No
  Sender: FDA-Public Use
  Company Number: US-009507513-1608USA008197

PATIENT
  Age: 60 Year
  Sex: Male

DRUGS (14)
  1. PROVENTIL [Suspect]
     Active Substance: ALBUTEROL
     Indication: ASTHMA
     Dosage: UNK
  2. PROVENTIL [Suspect]
     Active Substance: ALBUTEROL
     Dosage: 1?2 PUFFS AS NEEDED
  3. PROVENTIL [Suspect]
     Active Substance: ALBUTEROL
     Dosage: 2 PUFFS EVERY 6 HOURS
     Dates: start: 20200316
  4. PROVENTIL [Suspect]
     Active Substance: ALBUTEROL
     Indication: PROPHYLAXIS AGAINST BRONCHOSPASM
     Dosage: 90 MICROGRAM, TWICE A DAY OR AS MUCH AS HE NEEDS, TAKES ABOUT 2 PUFFS
     Route: 055
     Dates: start: 201311
  5. PROVENTIL [Suspect]
     Active Substance: ALBUTEROL
     Dosage: UNK
  6. PROVENTIL [Concomitant]
     Active Substance: ALBUTEROL
     Dosage: UNK
  7. BACLOFEN. [Concomitant]
     Active Substance: BACLOFEN
     Dosage: UNK
  8. PROVENTIL [Suspect]
     Active Substance: ALBUTEROL
     Dosage: 2 PUFFS EVERY 6 HOURS
     Dates: start: 20200318
  9. PROVENTIL [Suspect]
     Active Substance: ALBUTEROL
     Dosage: TWICE DAILY
     Dates: start: 20200624
  10. PROVENTIL [Suspect]
     Active Substance: ALBUTEROL
     Dosage: UNK, CURRENT INHALER
     Dates: start: 2020
  11. PROVENTIL [Suspect]
     Active Substance: ALBUTEROL
     Dosage: UNK
     Dates: start: 2020
  12. SPIRIVA [Concomitant]
     Active Substance: TIOTROPIUM BROMIDE MONOHYDRATE
     Dosage: UNK
     Route: 055
  13. PROVENTIL [Suspect]
     Active Substance: ALBUTEROL
     Indication: BRONCHOSPASM
     Dosage: 90 MICROGRAM
     Route: 055
     Dates: start: 201608, end: 201608
  14. PROVENTIL [Suspect]
     Active Substance: ALBUTEROL
     Indication: CHRONIC OBSTRUCTIVE PULMONARY DISEASE
     Dosage: UNK
     Route: 055

REACTIONS (28)
  - Breath odour [Unknown]
  - Chest pain [Not Recovered/Not Resolved]
  - Product dose omission issue [Unknown]
  - Product quality issue [Unknown]
  - Poor quality device used [Unknown]
  - Product use in unapproved indication [Unknown]
  - Incorrect dose administered [Unknown]
  - Poor quality device used [Unknown]
  - Burning sensation [Not Recovered/Not Resolved]
  - Dyspnoea [Unknown]
  - Throat irritation [Unknown]
  - Product counterfeit [Unknown]
  - Burning sensation [Unknown]
  - Throat irritation [Recovered/Resolved]
  - Product quality issue [Unknown]
  - Product colour issue [Unknown]
  - Burning sensation [Recovered/Resolved]
  - Product odour abnormal [Unknown]
  - Product dose omission issue [Unknown]
  - Cough [Recovered/Resolved]
  - Throat irritation [Recovered/Resolved]
  - Poor quality device used [Unknown]
  - Cough [Recovering/Resolving]
  - Product quality issue [Unknown]
  - Product dose omission issue [Unknown]
  - Product quality issue [Unknown]
  - Stress [Unknown]
  - Product taste abnormal [Unknown]

NARRATIVE: CASE EVENT DATE: 2013
